FAERS Safety Report 6946127-1 (Version None)
Quarter: 2010Q3

REPORT INFORMATION
  Report Type: 
  Country: None (occurrence: None)
  Receive Date: 20100817
  Receipt Date: 20091228
  Transmission Date: 20110219
  Serious: Yes (Hospitalization)
  Sender: FDA-Public Use
  Company Number: 20096504

PATIENT
  Sex: Female

DRUGS (2)
  1. LIORESAL [Suspect]
     Indication: MUSCLE SPASTICITY
     Dosage: UNK MCG; DAILY, INTRATHECAL
     Route: 037
  2. MORPHINE [Concomitant]

REACTIONS (6)
  - NAUSEA [None]
  - PAIN [None]
  - TINNITUS [None]
  - TREMOR [None]
  - VOMITING [None]
  - WITHDRAWAL SYNDROME [None]
